FAERS Safety Report 8077432-6 (Version None)
Quarter: 2012Q1

REPORT INFORMATION
  Report Type: 
  Country: None (occurrence: None)
  Receive Date: 20120127
  Receipt Date: 20120123
  Transmission Date: 20120608
  Serious: Yes (Other)
  Sender: FDA-Public Use
  Company Number: PHHY2012JP006227

PATIENT
  Age: 48 Year
  Sex: Female

DRUGS (4)
  1. PREDNISOLONE [Concomitant]
     Dosage: 5 MG, UNK
     Route: 048
  2. PREDNISOLONE [Concomitant]
     Indication: PYODERMA GANGRENOSUM
     Dosage: 8 MG, UNK
     Route: 048
  3. PREDNISOLONE [Concomitant]
     Dosage: 30 MG, UNK
     Route: 048
  4. CYCLOSPORINE [Suspect]
     Indication: PYODERMA GANGRENOSUM
     Dosage: UNK UKN, UNK

REACTIONS (3)
  - GAIT DISTURBANCE [None]
  - RENAL FAILURE ACUTE [None]
  - SKIN ULCER [None]
